FAERS Safety Report 6430396-0 (Version None)
Quarter: 2009Q4

REPORT INFORMATION
  Report Type: 
  Country: None (occurrence: None)
  Receive Date: 20091106
  Receipt Date: 20091027
  Transmission Date: 20100525
  Serious: Yes (Other)
  Sender: FDA-Public Use
  Company Number: US-PFIZER INC-2009225443

PATIENT
  Sex: Female
  Weight: 56.689 kg

DRUGS (1)
  1. NEURONTIN [Suspect]
     Indication: NEURALGIA
     Dosage: 100 MG, 1X/DAY
     Dates: start: 20090331, end: 20090407

REACTIONS (2)
  - ABNORMAL BEHAVIOUR [None]
  - DIZZINESS [None]
